FAERS Safety Report 6251281-3 (Version None)
Quarter: 2009Q2

REPORT INFORMATION
  Report Type: 
  Country: None (occurrence: None)
  Receive Date: 20090626
  Receipt Date: 20090617
  Transmission Date: 20091009
  Serious: Yes (Congenital Anomaly)
  Sender: FDA-Public Use
  Company Number: GXKR2009IT07032

PATIENT
  Sex: Male

DRUGS (1)
  1. MYCOPHENOLATE MOFETIL [Suspect]
     Dosage: MATERNAL DOSE: 500 MG, QD, TRANSPLACENTAL
     Route: 064

REACTIONS (3)
  - CAESAREAN SECTION [None]
  - CHOROIDAL COLOBOMA [None]
  - MATERNAL DRUGS AFFECTING FOETUS [None]
